FAERS Safety Report 16919845 (Version 2)
Quarter: 2019Q4

REPORT INFORMATION
  Report Type: Report from Study
  Country: US (occurrence: US)
  Receive Date: 20191015
  Receipt Date: 20191203
  Transmission Date: 20200122
  Serious: Yes (Hospitalization)
  Sender: FDA-Public Use
  Company Number: US-ACTELION-A-US2017-152984

PATIENT
  Age: 66 Year
  Sex: Male
  Weight: 103.86 kg

DRUGS (9)
  1. UPTRAVI [Suspect]
     Active Substance: SELEXIPAG
     Dosage: 1000 MCG, BID
     Route: 048
  2. LIPITOR [Suspect]
     Active Substance: ATORVASTATIN CALCIUM
     Indication: PRODUCT USED FOR UNKNOWN INDICATION
     Dosage: UNK
     Route: 048
     Dates: end: 201803
  3. UPTRAVI [Suspect]
     Active Substance: SELEXIPAG
     Dosage: 1600 MCG, BID
     Route: 048
  4. UPTRAVI [Suspect]
     Active Substance: SELEXIPAG
     Dosage: 1200 MCG, BID
     Route: 048
     Dates: start: 20170417
  5. UPTRAVI [Suspect]
     Active Substance: SELEXIPAG
     Indication: PULMONARY ARTERIAL HYPERTENSION
     Dosage: 200 MCG, BID
     Route: 048
  6. CRESTOR [Concomitant]
     Active Substance: ROSUVASTATIN CALCIUM
  7. TYVASO [Concomitant]
     Active Substance: TREPROSTINIL
  8. ADEMPAS [Concomitant]
     Active Substance: RIOCIGUAT
  9. REMODULIN [Concomitant]
     Active Substance: TREPROSTINIL

REACTIONS (22)
  - Vomiting [Unknown]
  - Feeling abnormal [Unknown]
  - Hypotension [Unknown]
  - Dyspnoea [Unknown]
  - Somnolence [Unknown]
  - Cardiac arrest [Unknown]
  - Injection site pain [Unknown]
  - Hepatic enzyme increased [Recovered/Resolved]
  - Hypoaesthesia [Unknown]
  - Injection site erythema [Unknown]
  - Hospitalisation [Unknown]
  - Nausea [Unknown]
  - Fatigue [Unknown]
  - Chest pain [Unknown]
  - Pain [Not Recovered/Not Resolved]
  - Ascites [Unknown]
  - Swelling [Unknown]
  - Paranasal sinus hypersecretion [Unknown]
  - Headache [Unknown]
  - Dyspnoea exertional [Unknown]
  - Presyncope [Unknown]
  - Dizziness [Unknown]

NARRATIVE: CASE EVENT DATE: 20170418
